FAERS Safety Report 4315073-4 (Version None)
Quarter: 2004Q1

REPORT INFORMATION
  Report Type: 
  Country: None (occurrence: None)
  Receive Date: 20040310
  Receipt Date: 20031114
  Transmission Date: 20041129
  Serious: Yes (Other)
  Sender: FDA-Public Use
  Company Number: BR-ROCHE-351794

PATIENT
  Age: 32 Year
  Sex: Female
  Weight: 60 kg

DRUGS (3)
  1. ACCUTANE [Suspect]
     Indication: ACNE
     Route: 048
     Dates: start: 19980615, end: 19980615
  2. ACCUTANE [Suspect]
     Route: 048
     Dates: start: 20030615
  3. ACCUTANE [Suspect]
     Route: 048
     Dates: end: 20031031

REACTIONS (2)
  - ACNE [None]
  - VULVAL DISORDER [None]
